FAERS Safety Report 5332720-9 (Version None)
Quarter: 2007Q2

REPORT INFORMATION
  Report Type: 
  Country: None (occurrence: None)
  Receive Date: 20070523
  Receipt Date: 20070515
  Transmission Date: 20071010
  Serious: Yes (Death, Life-Threatening, Hospitalization, Other)
  Sender: FDA-Public Use
  Company Number: JP-ABBOTT-07P-087-0363720-00

PATIENT
  Sex: Male

DRUGS (17)
  1. KALETRA [Suspect]
     Indication: HIV INFECTION
     Route: 048
     Dates: start: 20020401, end: 20050730
  2. ZIDOVUDINE [Suspect]
     Indication: HIV INFECTION
     Route: 048
     Dates: start: 20020401, end: 20050613
  3. DIDANOSINE [Suspect]
     Indication: HIV INFECTION
     Route: 048
     Dates: start: 20020401, end: 20050730
  4. TENOFOVIR [Suspect]
     Indication: HIV INFECTION
     Route: 048
     Dates: start: 20050614, end: 20050730
  5. BACTRIM [Concomitant]
     Indication: ANTIFUNGAL PROPHYLAXIS
     Route: 048
     Dates: start: 20020409, end: 20021217
  6. BACTRIM [Concomitant]
     Route: 048
     Dates: start: 20050920, end: 20051009
  7. RURIOCTOCOG ALFA [Concomitant]
     Indication: FACTOR VIII DEFICIENCY
     Route: 042
     Dates: start: 19981101, end: 20050730
  8. RURIOCTOCOG ALFA [Concomitant]
     Route: 042
     Dates: start: 20050730, end: 20051217
  9. ALLOPURINOL [Concomitant]
     Indication: HYPERURICAEMIA
     Route: 048
     Dates: start: 20040713, end: 20050730
  10. TEPRENONE [Concomitant]
     Indication: GASTRITIS
     Route: 048
     Dates: start: 20051012, end: 20051128
  11. RABEPRAZOLE SODIUM [Concomitant]
     Indication: GASTRITIS
     Route: 048
     Dates: start: 20051010, end: 20051125
  12. OMEPAZOLE [Concomitant]
     Indication: GASTRITIS
     Dates: start: 20050801, end: 20050813
  13. OMEPAZOLE [Concomitant]
     Route: 048
     Dates: start: 20051126, end: 20051217
  14. FAMOTIDINE [Concomitant]
     Indication: GASTRITIS
     Dates: start: 20050731, end: 20050731
  15. CLARITHROMYCIN [Concomitant]
     Indication: BRONCHITIS CHRONIC
     Route: 048
     Dates: start: 20050308, end: 20050730
  16. RANITIDINE HYDROCHLORIDE [Concomitant]
     Indication: DUODENAL ULCER
     Route: 048
     Dates: start: 20041222, end: 20050730
  17. RANITIDINE HYDROCHLORIDE [Concomitant]
     Indication: GASTRITIS
     Route: 048
     Dates: start: 20050902, end: 20051009

REACTIONS (9)
  - ALTERED STATE OF CONSCIOUSNESS [None]
  - ANAEMIA [None]
  - ARTHRITIS BACTERIAL [None]
  - CHOLECYSTITIS ACUTE [None]
  - DYSPNOEA EXERTIONAL [None]
  - MULTI-ORGAN FAILURE [None]
  - PANCREATITIS ACUTE [None]
  - RENAL FAILURE ACUTE [None]
  - SUBDURAL HAEMATOMA [None]
